FAERS Safety Report 5943299-2 (Version None)
Quarter: 2008Q4

REPORT INFORMATION
  Report Type: 
  Country: None (occurrence: None)
  Receive Date: 20081106
  Receipt Date: 20081029
  Transmission Date: 20090506
  Serious: Yes (Other)
  Sender: FDA-Public Use
  Company Number: PHHY2008BR26793

PATIENT
  Sex: Male
  Weight: 68 kg

DRUGS (3)
  1. DIOVAN HCT [Suspect]
     Indication: CARDIAC DISORDER
     Dosage: 80/12.5 MG TWICE DAILY
     Route: 048
  2. VERAPAMIL [Concomitant]
     Indication: TACHYCARDIA
     Dosage: 240 MG ONCE DAILY
     Route: 048
  3. TIMOPTIC [Concomitant]
     Dosage: ONE DROP IN EACH EYE DAILY

REACTIONS (9)
  - ACCIDENT [None]
  - BACK PAIN [None]
  - BLOOD PRESSURE ABNORMAL [None]
  - BLOOD PRESSURE INCREASED [None]
  - FALL [None]
  - INJURY [None]
  - PHYSIOTHERAPY [None]
  - SPINAL FRACTURE [None]
  - TENDON RUPTURE [None]
